FAERS Safety Report 7659813-5 (Version None)
Quarter: 2011Q3

REPORT INFORMATION
  Report Type: 
  Country: None (occurrence: None)
  Receive Date: 20110805
  Receipt Date: 20110726
  Transmission Date: 20111222
  Serious: Yes (Hospitalization)
  Sender: FDA-Public Use
  Company Number: NL-PFIZER INC-2011070763

PATIENT
  Age: 48 Year
  Sex: Male
  Weight: 85.5 kg

DRUGS (7)
  1. DEXAMETHASONE [Concomitant]
     Indication: PREMEDICATION
     Route: 042
     Dates: start: 20110322, end: 20110322
  2. CLEMASTINE FUMARATE [Concomitant]
     Route: 048
  3. DEPAKENE [Concomitant]
     Route: 048
  4. TEMSIROLIMUS [Suspect]
     Indication: GLIOBLASTOMA
     Dosage: 15 MG, WEEKLY
     Route: 042
     Dates: start: 20101129, end: 20110323
  5. ZANTAC [Concomitant]
     Indication: PREMEDICATION
     Route: 042
     Dates: start: 20110322, end: 20110322
  6. DEPAKENE [Concomitant]
     Indication: EPILEPSY
     Route: 048
  7. CLEMASTINE FUMARATE [Concomitant]
     Route: 048

REACTIONS (2)
  - PNEUMOTHORAX [None]
  - CANDIDA PNEUMONIA [None]
